FAERS Safety Report 8907015 (Version 2)
Quarter: 2012Q4

REPORT INFORMATION
  Report Type: 
  Country: GR (occurrence: GR)
  Receive Date: 20121114
  Receipt Date: 20121211
  Transmission Date: 20130627
  Serious: Yes (Other)
  Sender: FDA-Public Use
  Company Number: GR-JNJFOC-20121103152

PATIENT
  Age: 50 Year
  Sex: Male

DRUGS (2)
  1. SIMPONI [Suspect]
     Indication: JUVENILE ARTHRITIS
     Route: 058
  2. RIFADINE [Concomitant]
     Indication: TUBERCULIN TEST POSITIVE
     Route: 065

REACTIONS (1)
  - Erectile dysfunction [Unknown]
